FAERS Safety Report 10227084 (Version 1)
Quarter: 2014Q2

REPORT INFORMATION
  Report Type: Report from Study
  Country: US (occurrence: US)
  Receive Date: 20140610
  Receipt Date: 20140610
  Transmission Date: 20141212
  Serious: Yes (Hospitalization, Other)
  Sender: FDA-Public Use
  Company Number: US-ROCHE-1410342

PATIENT
  Sex: Male

DRUGS (7)
  1. NUTROPIN AQ [Suspect]
     Indication: HYPOPITUITARISM
     Route: 058
  2. CORTEF [Concomitant]
     Route: 048
  3. CLONIDINE [Concomitant]
     Dosage: AT BEDTIME
     Route: 048
  4. SYNTHROID [Concomitant]
     Dosage: 1.5 TAB
     Route: 048
  5. MIRALAX [Concomitant]
     Indication: CONSTIPATION
     Dosage: 4 TEASPOONS IN 4-8 OUNCES OF LIQUID
     Route: 048
  6. DDAVP [Concomitant]
     Dosage: 1.5 TAB IN THE AM AND 2.5 TAB IN THE PM
     Route: 048
  7. MELATONIN [Concomitant]
     Dosage: EVERY EVENING
     Route: 048

REACTIONS (14)
  - Hypernatraemia [Unknown]
  - Growth retardation [Unknown]
  - Constipation [Unknown]
  - Haemorrhoids [Unknown]
  - Developmental delay [Unknown]
  - Sinusitis [Unknown]
  - Pyrexia [Unknown]
  - Urine odour abnormal [Recovered/Resolved]
  - Limb asymmetry [Unknown]
  - Weight decreased [Unknown]
  - Growth retardation [Unknown]
  - Haematochezia [Unknown]
  - Dysphagia [Unknown]
  - Hyperacusis [Unknown]
